FAERS Safety Report 15440001 (Version 1)
Quarter: 2018Q4

REPORT INFORMATION
  Report Type: Spontaneous
  Country: US (occurrence: US)
  Receive Date: 20180928
  Receipt Date: 20180928
  Transmission Date: 20190204
  Serious: Yes (Other)
  Sender: FDA-Public Use
  Company Number: US-RIGEL PHARMACEUTICALS, INC.-2018FOS000091

PATIENT

DRUGS (2)
  1. TAVALISSE [Suspect]
     Active Substance: FOSTAMATINIB
     Indication: IMMUNE THROMBOCYTOPENIC PURPURA
     Dosage: 100 MG, BID
     Route: 048
     Dates: start: 20180720
  2. TAVALISSE [Suspect]
     Active Substance: FOSTAMATINIB
     Indication: WHITE BLOOD CELL COUNT INCREASED

REACTIONS (5)
  - Tremor [Unknown]
  - Drug ineffective [Unknown]
  - Seizure [Unknown]
  - Platelet count decreased [Unknown]
  - Product complaint [Unknown]

NARRATIVE: CASE EVENT DATE: 20180906
